FAERS Safety Report 6627711-1 (Version None)
Quarter: 2010Q1

REPORT INFORMATION
  Report Type: 
  Country: None (occurrence: None)
  Receive Date: 20100311
  Receipt Date: 20100301
  Transmission Date: 20100710
  Serious: Yes (Other)
  Sender: FDA-Public Use
  Company Number: PHHY2010US06054

PATIENT
  Sex: Female

DRUGS (5)
  1. SANDOSTATIN LAR [Suspect]
     Dosage: UNK
     Dates: start: 20091101
  2. DIOVAN [Concomitant]
  3. SOTALOL [Concomitant]
  4. HYDROCHLOROTHIAZIDE [Concomitant]
  5. OMEPRAZOLE [Concomitant]

REACTIONS (4)
  - ABDOMINAL PAIN [None]
  - BILE DUCT STENT INSERTION [None]
  - FLATULENCE [None]
  - FREQUENT BOWEL MOVEMENTS [None]
